FAERS Safety Report 7355351-8 (Version None)
Quarter: 2011Q1

REPORT INFORMATION
  Report Type: 
  Country: None (occurrence: None)
  Receive Date: 20110316
  Receipt Date: 20110309
  Transmission Date: 20110831
  Serious: Yes (Death, Life-Threatening)
  Sender: FDA-Public Use
  Company Number: FR-ROCHE-754972

PATIENT
  Sex: Female

DRUGS (10)
  1. ROACTEMRA [Suspect]
     Dosage: FREQUENCY: CYCLE
     Route: 042
     Dates: end: 20101122
  2. RASILEZ [Concomitant]
     Dates: end: 20101230
  3. KERLONE [Concomitant]
     Dates: end: 20101230
  4. CORTANCYL [Concomitant]
     Dates: end: 20101230
  5. EUPRESSYL [Concomitant]
     Dates: end: 20101230
  6. TRILEPTAL [Concomitant]
     Dates: end: 20101230
  7. FOSAMAX [Concomitant]
     Dates: end: 20101230
  8. ROACTEMRA [Suspect]
     Indication: RHEUMATOID ARTHRITIS
     Dosage: FREQUENCY: CYCLE
     Route: 042
     Dates: start: 20100601, end: 20100930
  9. ROACTEMRA [Suspect]
     Dosage: FREQUENCY: CYCLE
     Route: 042
     Dates: end: 20101025
  10. ROACTEMRA [Suspect]
     Dosage: FREQUENCY: CYCLE
     Route: 042
     Dates: end: 20101220

REACTIONS (3)
  - CHOLECYSTITIS ACUTE [None]
  - INFECTION [None]
  - LUNG DISORDER [None]
